FAERS Safety Report 12390689 (Version 1)
Quarter: 2016Q2

REPORT INFORMATION
  Report Type: Spontaneous
  Country: GB (occurrence: GB)
  Receive Date: 20160520
  Receipt Date: 20160520
  Transmission Date: 20160815
  Serious: Yes (Other)
  Sender: FDA-Public Use
  Company Number: GB-ACTAVIS-2016-10018

PATIENT
  Age: 79 Year
  Sex: Female

DRUGS (1)
  1. INDAPAMIDE (UNKNOWN) [Suspect]
     Active Substance: INDAPAMIDE
     Indication: ESSENTIAL HYPERTENSION
     Dosage: 1.5 MG, UNK
     Route: 048
     Dates: start: 20160422, end: 20160426

REACTIONS (3)
  - Orthostatic hypotension [Recovering/Resolving]
  - Malaise [Unknown]
  - Syncope [Unknown]
